FAERS Safety Report 10680932 (Version 4)
Quarter: 2015Q1

REPORT INFORMATION
  Report Type: Spontaneous
  Country: JP (occurrence: JP)
  Receive Date: 20141229
  Receipt Date: 20150217
  Transmission Date: 20150720
  Serious: Yes (Death)
  Sender: FDA-Public Use
  Company Number: JP-MALLINCKRODT-T201404038

PATIENT
  Age: 64 Year
  Sex: Male

DRUGS (19)
  1. MYONAL [Concomitant]
     Active Substance: EPERISONE HYDROCHLORIDE
     Dosage: 150 MG
     Route: 048
     Dates: end: 20141109
  2. LOXONIN [Concomitant]
     Active Substance: LOXOPROFEN SODIUM
     Dosage: 180 MG
     Route: 048
     Dates: end: 20141108
  3. LYRICA [Concomitant]
     Active Substance: PREGABALIN
     Dosage: 300 MG
     Route: 048
     Dates: end: 20141116
  4. GEBEN [Concomitant]
     Dosage: UNK
     Route: 061
     Dates: start: 20141107, end: 20141118
  5. PREDONINE [Concomitant]
     Active Substance: PREDNISOLONE\PREDNISOLONE ACETATE\PREDNISOLONE SODIUM SUCCINATE
     Dosage: 10 MG
     Route: 051
     Dates: start: 20141117, end: 20141118
  6. METHADONE [Suspect]
     Active Substance: METHADONE HYDROCHLORIDE
     Indication: CANCER PAIN
     Dosage: 10 MG (30 MG DAILY DOSE)
     Route: 048
     Dates: start: 20141002, end: 20141106
  7. METHADONE [Suspect]
     Active Substance: METHADONE HYDROCHLORIDE
     Dosage: 25 MG DAILY DOSE
     Route: 048
     Dates: start: 20141107, end: 20141116
  8. TRYPTANOL [Suspect]
     Active Substance: AMITRIPTYLINE
     Indication: PRODUCT USED FOR UNKNOWN INDICATION
     Dosage: 10 MG
     Route: 048
     Dates: end: 20141116
  9. MYSLEE [Concomitant]
     Active Substance: ZOLPIDEM TARTRATE
     Dosage: 10 MG
     Route: 065
  10. TAKEPRON [Concomitant]
     Active Substance: LANSOPRAZOLE
     Dosage: 15 MG
     Route: 048
     Dates: end: 20141116
  11. LOXONIN [Concomitant]
     Active Substance: LOXOPROFEN SODIUM
     Dosage: 120 MG
     Route: 048
     Dates: start: 20141110, end: 20141116
  12. PREDNISOLONE. [Concomitant]
     Active Substance: PREDNISOLONE
     Dosage: 10 MG
     Route: 048
     Dates: end: 20141030
  13. PREDNISOLONE. [Concomitant]
     Active Substance: PREDNISOLONE
     Dosage: 15 MG
     Route: 048
     Dates: start: 20141031, end: 20141116
  14. CALONAL [Concomitant]
     Active Substance: ACETAMINOPHEN
     Dosage: 1200 MG
     Route: 048
     Dates: end: 20141116
  15. CADEX [Concomitant]
     Dosage: UNK
     Route: 061
     Dates: start: 20141031, end: 20141118
  16. SOLDEM 1 [Concomitant]
     Dosage: 500 ML
     Route: 051
     Dates: start: 20141117, end: 20141118
  17. MUCOSTA [Concomitant]
     Active Substance: REBAMIPIDE
     Dosage: 300 MG
     Route: 048
     Dates: end: 20141109
  18. ACTOSIN [Concomitant]
     Dosage: UNK
     Route: 061
     Dates: start: 20141107, end: 20141118
  19. OXYFAST [Concomitant]
     Active Substance: OXYCODONE
     Dosage: 120 MG
     Route: 051
     Dates: start: 20141117, end: 20141118

REACTIONS (18)
  - Blood alkaline phosphatase increased [Unknown]
  - C-reactive protein increased [Unknown]
  - Alanine aminotransferase increased [Unknown]
  - Myoclonus [Not Recovered/Not Resolved]
  - Decubitus ulcer [Not Recovered/Not Resolved]
  - Blood lactate dehydrogenase increased [Unknown]
  - Aspartate aminotransferase increased [Unknown]
  - Blood uric acid increased [Unknown]
  - Pyrexia [Recovering/Resolving]
  - Gamma-glutamyltransferase increased [Unknown]
  - White blood cell count increased [Unknown]
  - Rectal cancer [Fatal]
  - Anaemia [Unknown]
  - Thermal burn [Not Recovered/Not Resolved]
  - Somnolence [Not Recovered/Not Resolved]
  - Blood urea increased [Unknown]
  - Blood creatinine increased [Unknown]
  - Blood potassium increased [Unknown]

NARRATIVE: CASE EVENT DATE: 20141021
